FAERS Safety Report 7680862-5 (Version None)
Quarter: 2011Q3

REPORT INFORMATION
  Report Type: 
  Country: None (occurrence: None)
  Receive Date: 20110812
  Receipt Date: 20110804
  Transmission Date: 20111222
  Serious: Yes (Hospitalization)
  Sender: FDA-Public Use
  Company Number: US-MERCK-1106USA00667

PATIENT
  Age: 75 Year
  Sex: Female

DRUGS (3)
  1. ALENDRONATE SODIUM [Suspect]
     Indication: OSTEOPOROSIS
     Route: 048
     Dates: start: 20091101
  2. LIBRAX [Concomitant]
     Indication: IRRITABLE BOWEL SYNDROME
     Route: 065
     Dates: start: 20060101, end: 20110101
  3. FOSAMAX [Suspect]
     Indication: OSTEOPOROSIS
     Route: 048
     Dates: start: 20000118, end: 20110101

REACTIONS (5)
  - ARTHROPATHY [None]
  - ANXIETY [None]
  - FEMUR FRACTURE [None]
  - IMPAIRED HEALING [None]
  - ANKLE FRACTURE [None]
